FAERS Safety Report 4875998-8 (Version None)
Quarter: 2005Q4

REPORT INFORMATION
  Report Type: 
  Country: None (occurrence: None)
  Receive Date: 20051207
  Receipt Date: 20051108
  Transmission Date: 20060501
  Serious: No
  Sender: FDA-Public Use
  Company Number: 2005RL000181

PATIENT
  Age: 55 Year
  Sex: Male
  Weight: 86.1834 kg

DRUGS (5)
  1. OMACOR [Suspect]
     Indication: ARTERIAL OCCLUSIVE DISEASE
     Dosage: 1 GM; QID; PO
     Route: 048
     Dates: start: 20051029
  2. OMACOR [Suspect]
     Indication: BLOOD TRIGLYCERIDES INCREASED
     Dosage: 1 GM; QID; PO
     Route: 048
     Dates: start: 20051029
  3. ASCORBIC ACID [Concomitant]
  4. MULTIVITAMIN [Concomitant]
  5. ^HOMOCYSTEINE FORMULA^ [Concomitant]

REACTIONS (1)
  - VISUAL DISTURBANCE [None]
